FAERS Safety Report 8761302 (Version 2)
Quarter: 2012Q4

REPORT INFORMATION
  Report Type: Report from Study
  Country: FR (occurrence: FR)
  Receive Date: 20120830
  Receipt Date: 20120906
  Transmission Date: 20130627
  Serious: Yes (Other)
  Sender: FDA-Public Use
  Company Number: FR-TEVA-356496ISR

PATIENT
  Age: 44 Year
  Sex: Female
  Weight: 57 kg

DRUGS (5)
  1. COPAXONE [Suspect]
     Indication: MULTIPLE SCLEROSIS
     Route: 058
     Dates: start: 20110705
  2. LAROXYL [Concomitant]
  3. LYRICA [Concomitant]
  4. MANTADIX [Concomitant]
  5. DITROPAN [Concomitant]

REACTIONS (3)
  - Multiple sclerosis relapse [Unknown]
  - Pyramidal tract syndrome [Unknown]
  - Demyelination [Not Recovered/Not Resolved]
